FAERS Safety Report 10750496 (Version 3)
Quarter: 2015Q2

REPORT INFORMATION
  Report Type: Spontaneous
  Country: IT (occurrence: IT)
  Receive Date: 20150130
  Receipt Date: 20150501
  Transmission Date: 20150821
  Serious: Yes (Other)
  Sender: FDA-Public Use
  Company Number: IT-ROCHE-1527962

PATIENT
  Age: 66 Year
  Sex: Male

DRUGS (4)
  1. CLEXANE MULTI [Concomitant]
     Dosage: 6000 IU AXA/0.6 ML SOLUTION FOR INJECTION
     Route: 058
  2. FLUOROURACILE TEVA [Concomitant]
     Active Substance: FLUOROURACIL
     Dosage: ^500 MG/10 ML SOLUTION FOR INFUSION^
     Route: 042
     Dates: start: 20141104, end: 20150117
  3. HERCEPTIN [Suspect]
     Active Substance: TRASTUZUMAB
     Indication: GASTRIC NEOPLASM
     Dosage: 150 MG POWDER FOR CONCENTRATE FOR SOLUTION
     Route: 041
     Dates: start: 20150116, end: 20150116
  4. CISPLATINO [Concomitant]
     Active Substance: CISPLATIN
     Dosage: ^0.5 MG/ML CONCENTRATE FOR SOLUTION FOR INFUSION^
     Route: 042
     Dates: start: 20141104, end: 20150117

REACTIONS (2)
  - Ataxia [Recovering/Resolving]
  - Neuropathy peripheral [Recovering/Resolving]

NARRATIVE: CASE EVENT DATE: 20150126
